FAERS Safety Report 7584365-8 (Version None)
Quarter: 2011Q2

REPORT INFORMATION
  Report Type: 
  Country: None (occurrence: None)
  Receive Date: 20110630
  Receipt Date: 20110629
  Transmission Date: 20111010
  Serious: Yes (Disabling)
  Sender: FDA-Public Use
  Company Number: US-PFIZER INC-2011145588

PATIENT
  Sex: Female

DRUGS (2)
  1. LYRICA [Suspect]
     Indication: FIBROMYALGIA
     Dosage: UNK
     Route: 048
  2. DEXAMETHASONE [Concomitant]
     Indication: ECZEMA
     Dosage: UNK
     Route: 061

REACTIONS (5)
  - INFLUENZA [None]
  - INCORRECT DOSE ADMINISTERED [None]
  - ORAL PAIN [None]
  - SKIN DISORDER [None]
  - DIZZINESS [None]
